FAERS Safety Report 8571497-0 (Version None)
Quarter: 2012Q3

REPORT INFORMATION
  Report Type: 
  Country: None (occurrence: None)
  Receive Date: 20120806
  Receipt Date: 20120727
  Transmission Date: 20120928
  Serious: Yes (Hospitalization)
  Sender: FDA-Public Use
  Company Number: CA-JNJFOC-20120714345

PATIENT
  Sex: Male
  Weight: 67.7 kg

DRUGS (4)
  1. VITAMIN B-12 [Concomitant]
     Route: 065
  2. IMURAN [Concomitant]
     Route: 065
  3. REMICADE [Suspect]
     Indication: CROHN'S DISEASE
     Route: 042
     Dates: start: 20120221
  4. REMICADE [Suspect]
     Dosage: 5TH INFUSION
     Route: 042
     Dates: start: 20120727

REACTIONS (1)
  - INTESTINAL RESECTION [None]
